FAERS Safety Report 7178454-X (Version None)
Quarter: 2010Q4

REPORT INFORMATION
  Report Type: 
  Country: None (occurrence: None)
  Receive Date: 20101220
  Receipt Date: 20101216
  Transmission Date: 20110411
  Serious: Yes (Other)
  Sender: FDA-Public Use
  Company Number: BR-ABBOTT-10P-020-0692103-00

PATIENT
  Sex: Male
  Weight: 23 kg

DRUGS (2)
  1. DEPAKENE [Suspect]
     Indication: MUSCLE SPASMS
     Dosage: 1ML 2 TIMES A DAY
     Dates: start: 20101202
  2. CLONAZEPAM [Interacting]
     Indication: MUSCLE SPASMS
     Dosage: 3 DROPS 2 TIMES A DAY
     Route: 048

REACTIONS (4)
  - COORDINATION ABNORMAL [None]
  - DRUG INTERACTION [None]
  - MUSCLE RIGIDITY [None]
  - MUSCLE SPASMS [None]
